FAERS Safety Report 4684633-3 (Version None)
Quarter: 2005Q2

REPORT INFORMATION
  Report Type: 
  Country: None (occurrence: None)
  Receive Date: 20050603
  Receipt Date: 20050524
  Transmission Date: 20051028
  Serious: Yes (Hospitalization)
  Sender: FDA-Public Use
  Company Number: S05-USA-02719-01

PATIENT
  Age: 68 Year
  Sex: Female

DRUGS (4)
  1. LEXAPRO [Suspect]
     Indication: PANIC ATTACK
     Dosage: 10 MG QD PO
     Route: 048
     Dates: start: 20050518, end: 20050518
  2. PRINIVIL [Concomitant]
  3. GLUCOPHAGE [Concomitant]
  4. ALBUTEROL [Concomitant]

REACTIONS (5)
  - BLOOD GLUCOSE INCREASED [None]
  - DIFFICULTY IN WALKING [None]
  - DIZZINESS [None]
  - DRUG HYPERSENSITIVITY [None]
  - FALL [None]
